FAERS Safety Report 9690377 (Version 1)
Quarter: 2013Q4

REPORT INFORMATION
  Report Type: Spontaneous
  Country: US (occurrence: None)
  Receive Date: 20131114
  Receipt Date: 20131114
  Transmission Date: 20140711
  Serious: Yes (Hospitalization)
  Sender: FDA-Public Use
  Company Number: None

PATIENT
  Sex: Female
  Weight: 106 kg

DRUGS (2)
  1. DAUNORUBICIN [Suspect]
     Dates: end: 20130318
  2. CYTARABINE [Suspect]
     Dates: end: 20130321

REACTIONS (4)
  - Asthenia [None]
  - Pyrexia [None]
  - Chills [None]
  - Febrile neutropenia [None]
